FAERS Safety Report 8536543-9 (Version None)
Quarter: 2012Q3

REPORT INFORMATION
  Report Type: 
  Country: None (occurrence: None)
  Receive Date: 20120718
  Receipt Date: 20120718
  Transmission Date: 20120928
  Serious: Yes (Other)
  Sender: FDA-Public Use
  Company Number: None

PATIENT
  Age: 23 Year
  Sex: Female
  Weight: 47.6277 kg

DRUGS (1)
  1. LO LOESTRIN FE [Suspect]
     Dates: start: 20120703, end: 20120717

REACTIONS (7)
  - ABDOMINAL PAIN UPPER [None]
  - VOMITING [None]
  - BACK PAIN [None]
  - DIZZINESS [None]
  - MUSCLE SPASMS [None]
  - HAEMORRHAGE [None]
  - UTERINE DISORDER [None]
